FAERS Safety Report 23927609 (Version 1)
Quarter: 2024Q2

REPORT INFORMATION
  Report Type: Spontaneous
  Country: AU (occurrence: AU)
  Receive Date: 20240531
  Receipt Date: 20240531
  Transmission Date: 20240716
  Serious: Yes (Other)
  Sender: FDA-Public Use
  Company Number: AU-GE HEALTHCARE-2024CSU005558

PATIENT
  Age: 72 Year
  Sex: Female
  Weight: 80 kg

DRUGS (1)
  1. OMNIPAQUE [Suspect]
     Active Substance: IOHEXOL
     Indication: Computerised tomogram abdomen
     Dosage: 60 ML, TOTAL
     Route: 065
     Dates: start: 20240523, end: 20240523

REACTIONS (3)
  - Sneezing [Recovered/Resolved]
  - Eye pruritus [Recovered/Resolved]
  - Oral pruritus [Recovered/Resolved]

NARRATIVE: CASE EVENT DATE: 20240523
